FAERS Safety Report 10424803 (Version 1)
Quarter: 2014Q3

REPORT INFORMATION
  Report Type: Spontaneous
  Country: US (occurrence: US)
  Receive Date: 20140902
  Receipt Date: 20140902
  Transmission Date: 20150326
  Serious: Yes (Other)
  Sender: FDA-Public Use
  Company Number: CHPA2014US011249

PATIENT
  Age: 60 Year
  Sex: Female

DRUGS (1)
  1. EXCEDRIN MIGRAINE [Suspect]
     Active Substance: ACETAMINOPHEN\ASPIRIN\CAFFEINE
     Indication: MIGRAINE
     Dosage: 1 TO 2 PILLS, PRN
     Route: 048

REACTIONS (3)
  - Incorrect dose administered [Unknown]
  - Osteoarthritis [Not Recovered/Not Resolved]
  - Drug ineffective [Unknown]
